FAERS Safety Report 9378699 (Version 1)
Quarter: 2013Q2

REPORT INFORMATION
  Report Type: Spontaneous
  Country: FR (occurrence: None)
  Receive Date: 20130626
  Receipt Date: 20130626
  Transmission Date: 20140414
  Serious: Yes (Death)
  Sender: FDA-Public Use
  Company Number: FK201302114

PATIENT
  Age: 44 Year
  Sex: Male

DRUGS (1)
  1. CAFFEINE CITRATE [Suspect]
     Indication: PRODUCT USED FOR UNKNOWN INDICATION
     Route: 048

REACTIONS (12)
  - Intentional overdose [None]
  - Hyperhidrosis [None]
  - Tremor [None]
  - Tachypnoea [None]
  - Cardiac arrest [None]
  - Ventricular fibrillation [None]
  - Hypokalaemia [None]
  - Hyperglycaemia [None]
  - Rhabdomyolysis [None]
  - Cardiac disorder [None]
  - Cardiac enzymes increased [None]
  - Toxicity to various agents [None]
